FAERS Safety Report 22945914 (Version 7)
Quarter: 2024Q1

REPORT INFORMATION
  Report Type: Report from Study
  Country: US (occurrence: US)
  Receive Date: 20230915
  Receipt Date: 20240229
  Transmission Date: 20240409
  Serious: Yes (Other)
  Sender: FDA-Public Use
  Company Number: US-ACADIA PHARMACEUTICALS INC.-ACA-2023-TRF-003650

PATIENT
  Age: 6 Year
  Sex: Female

DRUGS (15)
  1. DAYBUE [Suspect]
     Active Substance: TROFINETIDE
     Indication: Rett syndrome
     Dosage: 7.5 MILLILITER, BID
     Route: 048
     Dates: start: 20230822
  2. DAYBUE [Suspect]
     Active Substance: TROFINETIDE
     Dosage: 22.5 ML BID
     Route: 048
     Dates: start: 20230829
  3. DAYBUE [Suspect]
     Active Substance: TROFINETIDE
     Dosage: 15 MILLILITER, BID
     Route: 048
     Dates: start: 20230904
  4. DAYBUE [Suspect]
     Active Substance: TROFINETIDE
     Dosage: 22.5 ML BID
     Route: 048
     Dates: start: 20230915
  5. DAYBUE [Suspect]
     Active Substance: TROFINETIDE
     Dosage: 25 MILLILITER, BID
     Route: 048
     Dates: end: 20230927
  6. DAYBUE [Suspect]
     Active Substance: TROFINETIDE
     Dosage: 20 MILLILITER, BID
     Route: 048
  7. DAYBUE [Suspect]
     Active Substance: TROFINETIDE
     Dosage: 30 MILLILITER, BID
     Route: 048
  8. TRILEPTAL [Concomitant]
     Active Substance: OXCARBAZEPINE
     Dosage: 420 MILLIGRAM, BID
     Dates: start: 20230617
  9. TRILEPTAL [Concomitant]
     Active Substance: OXCARBAZEPINE
     Dosage: 4 MILLILITER
  10. TRILEPTAL [Concomitant]
     Active Substance: OXCARBAZEPINE
     Dosage: 7 MILLILITER, BID SUSPENSION
     Route: 048
     Dates: start: 20230711, end: 20231011
  11. CANNABIDIOL\HERBALS\TETRAHYDROCANNABINOL UNSPECIFIED [Concomitant]
     Active Substance: CANNABIDIOL\HERBALS\TETRAHYDROCANNABINOL UNSPECIFIED
     Dosage: 1 MILLILITER, QD (20MG/ML)
     Route: 048
  12. COROMEGA OMEGA 3 SQUEEZE [Concomitant]
     Dosage: TAKE 1 CAPSULE BY MOUTH DAILY
     Route: 048
  13. CHILDREN^S MULTIVITAMIN W/IRON [Concomitant]
     Dosage: TAKE BY MOUTH 2 TIMES DAILY
  14. CANNABIDIOL\HERBALS [Concomitant]
     Active Substance: CANNABIDIOL\HERBALS
     Dosage: 15 MILLIGRAM, BID
  15. KEPPRA [Concomitant]
     Active Substance: LEVETIRACETAM
     Dosage: TITRATING SLOWLY 1 MILLILITER, BID, 7DAYS

REACTIONS (14)
  - Partial seizures [Not Recovered/Not Resolved]
  - Product use complaint [Unknown]
  - Drug ineffective [Unknown]
  - Weight decreased [Unknown]
  - Treatment noncompliance [Unknown]
  - Flatulence [Recovered/Resolved]
  - Prescribed underdose [Not Recovered/Not Resolved]
  - Flatulence [Recovered/Resolved]
  - Abdominal pain upper [Recovered/Resolved]
  - Eyelid rash [Recovered/Resolved]
  - Tremor [Not Recovered/Not Resolved]
  - Decreased appetite [Unknown]
  - Diarrhoea [Not Recovered/Not Resolved]
  - Nasopharyngitis [Recovered/Resolved]

NARRATIVE: CASE EVENT DATE: 20230601
